FAERS Safety Report 6523526-3 (Version None)
Quarter: 2009Q4

REPORT INFORMATION
  Report Type: 
  Country: None (occurrence: None)
  Receive Date: 20091231
  Receipt Date: 20091221
  Transmission Date: 20100525
  Serious: Yes (Other)
  Sender: FDA-Public Use
  Company Number: PHHY2009DE53049

PATIENT
  Sex: Male
  Weight: 112 kg

DRUGS (14)
  1. ALISKIREN ALI+ [Suspect]
     Indication: HYPERTENSION
     Dosage: 300 MG/DAY
     Route: 048
     Dates: start: 20081201
  2. BLOPRESS PLUS [Suspect]
     Indication: HYPERTENSION
     Dosage: UNK
     Route: 048
     Dates: start: 20090728
  3. METOPROLOL TARTRATE [Suspect]
     Indication: HYPERTENSION
     Dosage: 200 MG/DAY
     Route: 048
     Dates: start: 20050120
  4. CARMEN [Suspect]
     Indication: HYPERTENSION
     Dosage: 20 MG/DAY
     Route: 048
     Dates: start: 20081201
  5. CALCIUM ANTAGONIST [Concomitant]
     Indication: HYPERTENSION
  6. BETA BLOCKING AGENTS [Concomitant]
     Indication: HYPERTENSION
  7. DIURETICS [Concomitant]
     Indication: HYPERTENSION
  8. PLATELET AGGREGATION INHIBITORS [Concomitant]
  9. STATIN [Concomitant]
  10. ANGIOTENSIN RECEPTOR BLOCKER [Concomitant]
     Indication: HYPERTENSION
  11. FUROSEMID [Concomitant]
     Indication: HYPERTENSION
     Dosage: 40 MG/DAY
     Route: 048
     Dates: start: 20070116
  12. ASPIRIN [Concomitant]
     Dosage: 100 MG/DAY
     Route: 048
     Dates: start: 20050120
  13. ALLOPURINOL [Concomitant]
     Indication: HYPERURICAEMIA
     Dosage: 300 MG/DAY
     Route: 048
     Dates: start: 20010115
  14. SIMVASTATIN [Concomitant]
     Indication: HYPERCHOLESTEROLAEMIA
     Dosage: 20 MG/DAY
     Route: 048
     Dates: start: 20050120

REACTIONS (1)
  - HYPERTENSIVE CRISIS [None]
